FAERS Safety Report 12508986 (Version 1)
Quarter: 2016Q2

REPORT INFORMATION
  Report Type: Spontaneous
  Country: BR (occurrence: BR)
  Receive Date: 20160629
  Receipt Date: 20160629
  Transmission Date: 20160815
  Serious: Yes (Other)
  Sender: FDA-Public Use
  Company Number: PHHY2016BR088787

PATIENT
  Sex: Female

DRUGS (3)
  1. EXELON PATCH [Suspect]
     Active Substance: RIVASTIGMINE
     Indication: PRODUCT USED FOR UNKNOWN INDICATION
     Dosage: 4.6 MG (PATCH: 9 MG/5 CM2, 30 PATCHES), QD
     Route: 062
     Dates: start: 20160621
  2. EXELON [Suspect]
     Active Substance: RIVASTIGMINE TARTRATE
     Indication: PRODUCT USED FOR UNKNOWN INDICATION
     Dosage: 1 DF, QD
     Route: 065
  3. EXELON [Suspect]
     Active Substance: RIVASTIGMINE TARTRATE
     Dosage: 2 DF (1 TABLET IN THE MORNING AND 1 TABLET AT NIGHT), QD
     Route: 065

REACTIONS (2)
  - Incorrect drug administration duration [Unknown]
  - Dementia [Unknown]

NARRATIVE: CASE EVENT DATE: 20160621
